FAERS Safety Report 23468335 (Version 1)
Quarter: 2024Q1

REPORT INFORMATION
  Report Type: Report from Study
  Country: US (occurrence: US)
  Receive Date: 20240202
  Receipt Date: 20240202
  Transmission Date: 20240410
  Serious: No
  Sender: FDA-Public Use
  Company Number: US-ALXN-202401USA001959US

PATIENT

DRUGS (1)
  1. STRENSIQ [Suspect]
     Active Substance: ASFOTASE ALFA
     Indication: Product used for unknown indication
     Dosage: UNK
     Route: 065

REACTIONS (5)
  - Otitis externa [Unknown]
  - Cafe au lait spots [Unknown]
  - Lipohypertrophy [Unknown]
  - Empty sella syndrome [Unknown]
  - Optic disc disorder [Unknown]

NARRATIVE: CASE EVENT DATE: 20231101
